FAERS Safety Report 8708754 (Version 3)
Quarter: 2013Q4

REPORT INFORMATION
  Report Type: Spontaneous
  Country: DE (occurrence: DE)
  Receive Date: 20120806
  Receipt Date: 20131105
  Transmission Date: 20140711
  Serious: Yes (Disabling)
  Sender: FDA-Public Use
  Company Number: DE-009507513-1207DEU007983

PATIENT
  Age: 38 Year
  Sex: Male

DRUGS (6)
  1. ISENTRESS [Suspect]
     Indication: HIV INFECTION
     Dosage: 400 MG, BID
     Route: 048
     Dates: start: 20120209, end: 20120315
  2. TRUVADA [Concomitant]
     Indication: HIV INFECTION
     Route: 048
  3. TENOFOVIR [Concomitant]
     Indication: HIV INFECTION
     Dosage: 245 MG, QD
     Route: 048
     Dates: start: 20120209
  4. EMTRICITABINE [Concomitant]
     Indication: HIV INFECTION
     Dosage: 200 MG, QD
     Route: 048
     Dates: start: 20120209, end: 20120323
  5. INTELENCE [Concomitant]
  6. PREZISTA [Concomitant]

REACTIONS (2)
  - Virologic failure [Recovered/Resolved with Sequelae]
  - Drug ineffective [Unknown]
